FAERS Safety Report 14111228 (Version 1)
Quarter: 2017Q4

REPORT INFORMATION
  Report Type: Spontaneous
  Country: FR (occurrence: FR)
  Receive Date: 20171020
  Receipt Date: 20171020
  Transmission Date: 20180321
  Serious: Yes (Other)
  Sender: FDA-Public Use
  Company Number: FR-MERCK KGAA-2030903

PATIENT
  Age: 56 Year
  Sex: Female
  Weight: 37 kg

DRUGS (3)
  1. CORTISONE(CORTISONE)(CORTISONE) [Concomitant]
  2. AMOXICILLINE (AMOXICILLIN TRIHYDRATE)(AMOXICILLIN TRIHYDRATE) [Concomitant]
  3. NOVOTHYROX [Suspect]
     Active Substance: LEVOTHYROXINE SODIUM
     Indication: POST PROCEDURAL HYPOTHYROIDISM
     Dates: start: 201704

REACTIONS (5)
  - Weight decreased [None]
  - Pain [None]
  - Musculoskeletal stiffness [None]
  - Insomnia [None]
  - Decreased appetite [None]
